FAERS Safety Report 9464964 (Version 3)
Quarter: 2013Q3

REPORT INFORMATION
  Report Type: Report from Study
  Country: US (occurrence: US)
  Receive Date: 20130819
  Receipt Date: 20130917
  Transmission Date: 20140515
  Serious: Yes (Hospitalization)
  Sender: FDA-Public Use
  Company Number: US-JNJFOC-20130806379

PATIENT
  Age: 18 Year
  Sex: Male
  Weight: 70.8 kg

DRUGS (12)
  1. REMICADE [Suspect]
     Indication: CROHN^S DISEASE
     Route: 042
     Dates: start: 20080421, end: 20080919
  2. HUMIRA [Concomitant]
     Route: 065
     Dates: start: 20100101
  3. HUMIRA [Concomitant]
     Route: 065
     Dates: start: 20081119, end: 20100115
  4. CIMZIA [Concomitant]
     Route: 065
     Dates: start: 20100609
  5. BUDESONIDE [Concomitant]
     Route: 065
  6. METHOTREXATE [Concomitant]
     Route: 065
  7. FLONASE [Concomitant]
     Route: 065
  8. CALCIUM AND VITAMIN D [Concomitant]
     Route: 065
  9. FLUOXETINE [Concomitant]
     Route: 048
  10. ZOFRAN [Concomitant]
     Route: 048
  11. OMEPRAZOLE [Concomitant]
     Route: 065
  12. ALBUTEROL [Concomitant]
     Route: 055

REACTIONS (1)
  - Crohn^s disease [Recovered/Resolved]
